FAERS Safety Report 9512309 (Version 1)
Quarter: 2013Q3

REPORT INFORMATION
  Report Type: Spontaneous
  Country: US (occurrence: US)
  Receive Date: 20130910
  Receipt Date: 20130910
  Transmission Date: 20140515
  Serious: Yes (Hospitalization)
  Sender: FDA-Public Use
  Company Number: -SAAVPROD-BMS17010380

PATIENT
  Age: 89 Year
  Sex: Female

DRUGS (4)
  1. AVAPRO TABS 300 MG [Suspect]
  2. NORVASC [Suspect]
  3. AMLODIPINE BESYLATE [Suspect]
  4. SPIRONOLACTONE [Concomitant]

REACTIONS (1)
  - Anaphylactic reaction [Unknown]
